FAERS Safety Report 16196350 (Version 1)
Quarter: 2019Q2

REPORT INFORMATION
  Report Type: Spontaneous
  Country: JP (occurrence: JP)
  Receive Date: 20190415
  Receipt Date: 20190415
  Transmission Date: 20190711
  Serious: Yes (Hospitalization, Other)
  Sender: FDA-Public Use
  Company Number: JP-ELI_LILLY_AND_COMPANY-JP201904006330

PATIENT
  Age: 26 Year
  Sex: Female
  Weight: 43 kg

DRUGS (21)
  1. ACETAMINOFEN [Concomitant]
     Active Substance: ACETAMINOPHEN
     Route: 048
  2. CLONAZEPAM. [Suspect]
     Active Substance: CLONAZEPAM
     Indication: DEPRESSION
     Route: 048
  3. TEPRENONE [Concomitant]
     Active Substance: TEPRENONE
     Route: 048
  4. SODIUM PICOSULFATE [Concomitant]
     Active Substance: SODIUM PICOSULFATE
     Route: 048
  5. DAIKENCHUTO [Concomitant]
     Active Substance: HERBALS
     Route: 048
  6. MINOCYCLINE HYDROCHLORIDE. [Concomitant]
     Active Substance: MINOCYCLINE HYDROCHLORIDE
     Route: 048
  7. DICLOFENAC SODIUM. [Concomitant]
     Active Substance: DICLOFENAC SODIUM
     Route: 048
  8. DULOXETINE HYDROCHLORIDE. [Suspect]
     Active Substance: DULOXETINE HYDROCHLORIDE
     Indication: DEPRESSION
     Route: 048
  9. BIPERIDEN [Suspect]
     Active Substance: BIPERIDEN
     Indication: DEPRESSION
     Route: 048
  10. AMITRIPTYLINE [Suspect]
     Active Substance: AMITRIPTYLINE
     Indication: DEPRESSION
     Route: 048
  11. NITRAZEPAM [Suspect]
     Active Substance: NITRAZEPAM
     Indication: DEPRESSION
     Route: 048
  12. CHLORPROMAZINE. [Suspect]
     Active Substance: CHLORPROMAZINE
     Indication: DEPRESSION
     Route: 048
  13. BAYASPIRIN [Concomitant]
     Active Substance: ASPIRIN
     Route: 048
  14. MAGNESIUM OXIDE. [Concomitant]
     Active Substance: MAGNESIUM OXIDE
     Route: 048
  15. SENNA [Concomitant]
     Active Substance: SENNA LEAF\SENNOSIDES\SENNOSIDES A AND B
     Route: 048
  16. ANTIBIOTICS-RESISTANT LACTIC ACID BACTERIAE [Concomitant]
     Active Substance: UNSPECIFIED INGREDIENT
     Route: 048
  17. RISPERIDONE. [Suspect]
     Active Substance: RISPERIDONE
     Indication: DEPRESSION
     Route: 048
  18. PREGABALIN. [Concomitant]
     Active Substance: PREGABALIN
     Route: 048
  19. RABBIT VACCINIA EXTRACT [Concomitant]
     Active Substance: ORYCTOLAGUS CUNICULUS SKIN
     Route: 048
  20. TOCOPHERYL NICOTINATE [Concomitant]
     Active Substance: TOCOPHERYL NICOTINATE, D-.ALPHA.
     Route: 048
  21. ZOPICLONE [Suspect]
     Active Substance: ZOPICLONE
     Indication: DEPRESSION
     Route: 048

REACTIONS (4)
  - Decubitus ulcer [Recovered/Resolved]
  - Catatonia [Unknown]
  - Gastrointestinal perforation [Unknown]
  - Sedation complication [Unknown]

NARRATIVE: CASE EVENT DATE: 201412
